FAERS Safety Report 13072045 (Version 1)
Quarter: 2016Q4

REPORT INFORMATION
  Report Type: Spontaneous
  Country: US (occurrence: US)
  Receive Date: 20161228
  Receipt Date: 20161228
  Transmission Date: 20170207
  Serious: Yes (Other)
  Sender: FDA-Public Use
  Company Number: None

PATIENT
  Age: 45 Year
  Sex: Female
  Weight: 105.75 kg

DRUGS (1)
  1. PRISTIQ EXTENDED-RELEASE [Suspect]
     Active Substance: DESVENLAFAXINE SUCCINATE
     Route: 048

REACTIONS (4)
  - Hallucination [None]
  - Fear [None]
  - Nasopharyngitis [None]
  - Malaise [None]

NARRATIVE: CASE EVENT DATE: 20161227
